FAERS Safety Report 4300565-4 (Version None)
Quarter: 2004Q1

REPORT INFORMATION
  Report Type: 
  Country: None (occurrence: None)
  Receive Date: 20040217
  Receipt Date: 20040202
  Transmission Date: 20041129
  Serious: Yes (Death, Hospitalization, Other)
  Sender: FDA-Public Use
  Company Number: A117410

PATIENT
  Age: 8 Year
  Sex: Male

DRUGS (6)
  1. SILDENAFIL (SILDENAFIL) [Suspect]
     Indication: PULMONARY HYPERTENSION
     Dosage: 16 MG (QID), ORAL
     Route: 048
     Dates: start: 20010101
  2. PHENYTOIN [Concomitant]
  3. ONDANSETRON HCL [Concomitant]
  4. CLINDAMYCIN (CLINDAMYCIN) [Concomitant]
  5. CIPROFLOXACIN [Concomitant]
  6. ETOPOSIDE [Concomitant]

REACTIONS (16)
  - CARDIAC ARREST [None]
  - CONVULSION [None]
  - CORONARY ARTERY DISEASE [None]
  - CRYPTOGENIC ORGANIZING PNEUMONIA [None]
  - GASTROINTESTINAL DISORDER [None]
  - HYPERPLASIA [None]
  - INTERSTITIAL LUNG DISEASE [None]
  - LIVER DISORDER [None]
  - LUNG INFILTRATION [None]
  - LYMPHADENOPATHY [None]
  - PANCREATIC DISORDER [None]
  - PYREXIA [None]
  - RESPIRATORY DISTRESS [None]
  - T-CELL LYMPHOMA [None]
  - VENOOCCLUSIVE LIVER DISEASE [None]
  - VENTRICULAR FIBRILLATION [None]
